FAERS Safety Report 16130518 (Version 1)
Quarter: 2019Q1

REPORT INFORMATION
  Report Type: Spontaneous
  Country: FR (occurrence: FR)
  Receive Date: 20190328
  Receipt Date: 20190328
  Transmission Date: 20190418
  Serious: Yes (Other)
  Sender: FDA-Public Use
  Company Number: FR-PFIZER INC-2019130071

PATIENT
  Age: 33 Year
  Sex: Male
  Weight: 55 kg

DRUGS (5)
  1. VINCRISTINE SULFATE. [Suspect]
     Active Substance: VINCRISTINE SULFATE
     Indication: OLIGODENDROGLIOMA
     Dosage: UNK, NR
     Route: 042
     Dates: start: 201707, end: 201802
  2. NATULAN [Suspect]
     Active Substance: PROCARBAZINE HYDROCHLORIDE
     Indication: OLIGODENDROGLIOMA
     Dosage: UNK, NR
     Route: 048
     Dates: start: 201707, end: 20180213
  3. KEPPRA [Concomitant]
     Active Substance: LEVETIRACETAM
     Dosage: 2 DF, 1X/DAY
     Route: 048
  4. DESMODIUM [Concomitant]
     Dosage: UNK
     Route: 048
     Dates: end: 20180502
  5. BELUSTINE [Suspect]
     Active Substance: LOMUSTINE
     Indication: OLIGODENDROGLIOMA
     Dosage: UNK, NR
     Route: 048
     Dates: start: 201707, end: 20180213

REACTIONS (2)
  - Hepatocellular injury [Recovering/Resolving]
  - Cholestasis [Recovering/Resolving]

NARRATIVE: CASE EVENT DATE: 20180213
